FAERS Safety Report 16908931 (Version 1)
Quarter: 2019Q4

REPORT INFORMATION
  Report Type: Spontaneous
  Country: US (occurrence: US)
  Receive Date: 20191011
  Receipt Date: 20191011
  Transmission Date: 20200122
  Serious: Yes (Other)
  Sender: FDA-Public Use
  Company Number: US-HIKMA PHARMACEUTICALS USA INC.-US-H14001-19-05226

PATIENT
  Age: 16 Year
  Sex: Male
  Weight: 66.3 kg

DRUGS (6)
  1. METHOTREXATE. [Suspect]
     Active Substance: METHOTREXATE
     Indication: B PRECURSOR TYPE ACUTE LEUKAEMIA
     Dosage: DAY 1, 29
     Route: 037
     Dates: start: 20190806, end: 20190806
  2. INCB018424 [Suspect]
     Active Substance: RUXOLITINIB
     Indication: B PRECURSOR TYPE ACUTE LEUKAEMIA
     Dosage: DAY 1-14, 29-42
     Route: 048
     Dates: start: 20190806, end: 20190910
  3. VINCRISTINE [Suspect]
     Active Substance: VINCRISTINE
     Indication: B PRECURSOR TYPE ACUTE LEUKAEMIA
     Dosage: DAY 1, 8, 15, 43, 50
     Route: 042
     Dates: start: 20190806, end: 20190819
  4. PEGASPARGASE [Suspect]
     Active Substance: PEGASPARGASE
     Indication: B PRECURSOR TYPE ACUTE LEUKAEMIA
     Dosage: DAY 4, 43
     Route: 042
     Dates: start: 20190810, end: 20190810
  5. DEXAMETHASONE. [Suspect]
     Active Substance: DEXAMETHASONE
     Indication: B PRECURSOR TYPE ACUTE LEUKAEMIA
     Dosage: DAYS 1-7, 15-21
     Route: 048
     Dates: start: 20190806, end: 20190825
  6. DOXORUBICIN [Suspect]
     Active Substance: DOXORUBICIN
     Indication: B PRECURSOR TYPE ACUTE LEUKAEMIA
     Dosage: DAY 1, 8, 15
     Route: 042
     Dates: start: 20190806, end: 20190819

REACTIONS (2)
  - Varicella zoster virus infection [Recovering/Resolving]
  - Lymphopenia [Unknown]

NARRATIVE: CASE EVENT DATE: 20190907
